FAERS Safety Report 13759459 (Version 2)
Quarter: 2017Q3

REPORT INFORMATION
  Report Type: Spontaneous
  Country: US (occurrence: US)
  Receive Date: 20170717
  Receipt Date: 20170725
  Transmission Date: 20171127
  Serious: Yes (Other)
  Sender: FDA-Public Use
  Company Number: US-SA-2017SA127820

PATIENT
  Age: 74 Year
  Sex: Female

DRUGS (1)
  1. ICY HOT (MENTHOL) [Suspect]
     Active Substance: MENTHOL
     Indication: ANALGESIC THERAPY
     Route: 061
     Dates: start: 20170703

REACTIONS (2)
  - Haemorrhage subcutaneous [Unknown]
  - Application site pain [Unknown]

NARRATIVE: CASE EVENT DATE: 201707
